FAERS Safety Report 10185946 (Version 2)
Quarter: 2014Q2

REPORT INFORMATION
  Report Type: Report from Study
  Country: BR (occurrence: BR)
  Receive Date: 20140521
  Receipt Date: 20140618
  Transmission Date: 20141212
  Serious: Yes (Death)
  Sender: FDA-Public Use
  Company Number: PHHO2014BR007386

PATIENT
  Age: 4 Year
  Sex: Female
  Weight: 37 kg

DRUGS (5)
  1. EVEROLIMUS [Suspect]
     Indication: RHABDOMYOSARCOMA RECURRENT
     Dosage: 2.5MG QD WEEK, 5MG QD WEEKENDS
     Route: 048
     Dates: start: 20130305, end: 20140312
  2. GLUTAMINE [Concomitant]
     Indication: SUPPLEMENTATION THERAPY
     Dosage: 20 G, QD
     Route: 048
     Dates: start: 201204
  3. RANITIDINE [Concomitant]
     Indication: PROPHYLAXIS AGAINST GASTROINTESTINAL ULCER
     Dosage: 5 ML, QD
     Route: 048
     Dates: start: 201204
  4. SULFAMETHOXAZOLE W/TRIMETHOPRIM [Concomitant]
     Indication: PROPHYLAXIS
     Dosage: 10 ML, QD 3 X WEEK
     Route: 048
     Dates: start: 201204
  5. PROPANOLOL [Concomitant]
     Indication: HAEMANGIOMA
     Dosage: 30 MG, QD
     Route: 048
     Dates: start: 201204

REACTIONS (2)
  - Cardio-respiratory arrest [Fatal]
  - Malignant neoplasm progression [Fatal]
